FAERS Safety Report 7618798-8 (Version None)
Quarter: 2011Q3

REPORT INFORMATION
  Report Type: 
  Country: None (occurrence: None)
  Receive Date: 20110718
  Receipt Date: 20110707
  Transmission Date: 20111222
  Serious: Yes (Hospitalization)
  Sender: FDA-Public Use
  Company Number: CA-JNJFOC-20110704046

PATIENT
  Sex: Male
  Weight: 111 kg

DRUGS (2)
  1. REMICADE [Suspect]
     Indication: PSORIATIC ARTHROPATHY
     Dosage: THIS IS PATIENT'S 34TH INFLIXIMAB INFUSION
     Route: 042
     Dates: start: 20110707
  2. REMICADE [Suspect]
     Route: 042
     Dates: start: 20070717

REACTIONS (1)
  - ATRIAL FIBRILLATION [None]
